FAERS Safety Report 7206206-0 (Version None)
Quarter: 2011Q1

REPORT INFORMATION
  Report Type: 
  Country: None (occurrence: None)
  Receive Date: 20110103
  Receipt Date: 20101221
  Transmission Date: 20110831
  Serious: Yes (Hospitalization, Other)
  Sender: FDA-Public Use
  Company Number: US-ELI_LILLY_AND_COMPANY-US201007000301

PATIENT
  Sex: Female

DRUGS (18)
  1. ANTIDEPRESSANTS [Concomitant]
  2. PREDNISONE [Concomitant]
     Dosage: 30 MG, DAILY (1/D)
  3. FENTANYL [Concomitant]
  4. CITALOPRAM [Concomitant]
  5. FLEXERIL [Concomitant]
  6. POTASSIUM [Concomitant]
  7. ANTIHYPERTENSIVES [Concomitant]
  8. CALCIUM [Concomitant]
  9. ZAROXOLYN [Concomitant]
  10. PERCOCET [Concomitant]
  11. ASACOL [Concomitant]
  12. ZORAXIN [Concomitant]
  13. XANAX [Concomitant]
  14. DIAZIDE [Concomitant]
  15. ACTONEL [Concomitant]
  16. FORTEO [Suspect]
     Indication: OSTEOPOROSIS
     Dosage: 20 UG, DAILY (1/D)
     Dates: start: 20100416
  17. LASIX [Concomitant]
  18. VITAMIN D [Concomitant]

REACTIONS (19)
  - HOSPITALISATION [None]
  - FALL [None]
  - FEELING ABNORMAL [None]
  - MALAISE [None]
  - ABDOMINAL PAIN [None]
  - SPINAL FRACTURE [None]
  - INFLUENZA [None]
  - HEADACHE [None]
  - NECK PAIN [None]
  - PAIN IN EXTREMITY [None]
  - VOMITING [None]
  - GLAUCOMA [None]
  - COLITIS ULCERATIVE [None]
  - MACULAR DEGENERATION [None]
  - VISUAL ACUITY REDUCED [None]
  - CONTUSION [None]
  - WEIGHT DECREASED [None]
  - HAEMORRHAGE [None]
  - HYPONATRAEMIA [None]
